FAERS Safety Report 10142417 (Version 3)
Quarter: 2014Q2

REPORT INFORMATION
  Report Type: Report from Study
  Country: US (occurrence: US)
  Receive Date: 20140430
  Receipt Date: 20140603
  Transmission Date: 20141212
  Serious: Yes (Death, Hospitalization, Other)
  Sender: FDA-Public Use
  Company Number: US-BIOGENIDEC-2014BI037211

PATIENT
  Age: 60 Year
  Sex: Male
  Weight: 115 kg

DRUGS (9)
  1. TYSABRI [Suspect]
     Indication: MULTIPLE SCLEROSIS
     Route: 042
     Dates: start: 20090407, end: 20130207
  2. TECFIDERA [Concomitant]
     Indication: RELAPSING-REMITTING MULTIPLE SCLEROSIS
     Dates: start: 20130401, end: 201402
  3. AMPYRA [Concomitant]
     Indication: RELAPSING-REMITTING MULTIPLE SCLEROSIS
     Dates: start: 20100126, end: 20140208
  4. BACLOFEN [Concomitant]
     Dates: end: 20140216
  5. LISINOPRIL [Concomitant]
     Dates: end: 20140216
  6. ROSUVASTATIN [Concomitant]
     Dates: end: 20140216
  7. TRIAMTERENE [Concomitant]
     Dates: end: 20140216
  8. HYDROCHLOROTHIAZIDE [Concomitant]
     Dates: end: 20140216
  9. METFORMIN [Concomitant]
     Dates: end: 20140216

REACTIONS (2)
  - Renal failure acute [Fatal]
  - Intestinal ischaemia [Fatal]
